FAERS Safety Report 8473575-3 (Version None)
Quarter: 2012Q2

REPORT INFORMATION
  Report Type: 
  Country: None (occurrence: None)
  Receive Date: 20120628
  Receipt Date: 20110725
  Transmission Date: 20120825
  Serious: Yes (Death, Other)
  Sender: FDA-Public Use
  Company Number: US-MYLANLABS-2011S1012054

PATIENT
  Age: 30 Year
  Sex: Male
  Weight: 53.98 kg

DRUGS (5)
  1. ADDERALL 5 [Concomitant]
  2. KLONOPIN [Concomitant]
  3. SOMA [Concomitant]
  4. TEMAZEPAM [Concomitant]
  5. CLOZAPINE [Suspect]
     Indication: SCHIZOAFFECTIVE DISORDER
     Route: 048
     Dates: start: 20090318, end: 20110301

REACTIONS (1)
  - DEATH [None]
